FAERS Safety Report 5116221-9 (Version None)
Quarter: 2006Q3

REPORT INFORMATION
  Report Type: 
  Country: None (occurrence: None)
  Receive Date: 20060927
  Receipt Date: 20060612
  Transmission Date: 20061208
  Serious: Yes (Congenital Anomaly)
  Sender: FDA-Public Use
  Company Number: US-GLAXOSMITHKLINE-A0608718B

PATIENT
  Sex: Male

DRUGS (7)
  1. EPIVIR [Suspect]
     Indication: HIV INFECTION
     Dosage: 300MG PER DAY
     Dates: end: 20060315
  2. VIREAD [Suspect]
     Indication: HIV INFECTION
     Dosage: 300MG PER DAY
     Dates: end: 20060315
  3. REYATAZ [Suspect]
     Indication: HIV INFECTION
     Dosage: 400MG PER DAY
     Dates: end: 20060315
  4. XANAX [Concomitant]
  5. IMPRAMINE HCL [Concomitant]
  6. PERCOCET [Concomitant]
  7. ZOLOFT [Concomitant]

REACTIONS (6)
  - ABORTION INDUCED [None]
  - CONGENITAL GASTRIC ANOMALY [None]
  - DRUG EXPOSURE DURING PREGNANCY [None]
  - HYDROCEPHALUS [None]
  - TALIPES [None]
  - UMBILICAL CORD ABNORMALITY [None]
